FAERS Safety Report 25746081 (Version 2)
Quarter: 2025Q4

REPORT INFORMATION
  Report Type: Report from Study
  Country: EU (occurrence: EU)
  Receive Date: 20250901
  Receipt Date: 20251006
  Transmission Date: 20260118
  Serious: Yes (Hospitalization, Other)
  Sender: ROCHE
  Company Number: EU-ML39632-2644358-0

PATIENT
  Age: 62 Year
  Sex: Female

DRUGS (17)
  1. OCREVUS [Suspect]
     Active Substance: OCRELIZUMAB
     Indication: Relapsing multiple sclerosis
     Route: 042
     Dates: start: 20200311, end: 20200326
  2. OCREVUS [Suspect]
     Active Substance: OCRELIZUMAB
     Route: 042
     Dates: start: 20200929
  3. PANTOZOL [Concomitant]
     Active Substance: PANTOPRAZOLE SODIUM
     Route: 048
     Dates: start: 20200311
  4. PANTOZOL [Concomitant]
     Active Substance: PANTOPRAZOLE SODIUM
     Route: 048
     Dates: start: 20210604, end: 20210610
  5. NABIXIMOLS [Concomitant]
     Active Substance: NABIXIMOLS
     Route: 048
  6. DALFAMPRIDINE [Concomitant]
     Active Substance: DALFAMPRIDINE
     Route: 048
  7. ENOXAPARIN SODIUM [Concomitant]
     Active Substance: ENOXAPARIN SODIUM
     Route: 058
     Dates: start: 20210604, end: 20210609
  8. TIZANIDINE [Concomitant]
     Active Substance: TIZANIDINE
     Route: 048
  9. CANDESARTAN [Concomitant]
     Active Substance: CANDESARTAN
     Indication: Hypertension
     Route: 048
  10. PREDNISOLONE [Concomitant]
     Active Substance: PREDNISOLONE
     Route: 042
     Dates: start: 20200311
  11. IBUPROFEN [Concomitant]
     Active Substance: IBUPROFEN
     Indication: Pain
     Dosage: DEFINITION OF THE INTERVAL: AS REQUIRED
     Route: 048
  12. Comirnaty [Concomitant]
     Route: 030
     Dates: start: 20220211, end: 20220211
  13. Comirnaty [Concomitant]
     Route: 030
     Dates: start: 20220105, end: 20220105
  14. ACETAMINOPHEN [Concomitant]
     Active Substance: ACETAMINOPHEN
     Route: 048
     Dates: start: 20200311
  15. METHYLPREDNISOLONE [Concomitant]
     Active Substance: METHYLPREDNISOLONE
     Route: 042
     Dates: start: 20210605, end: 20210609
  16. DIMETHINDENE MALEATE [Concomitant]
     Active Substance: DIMETHINDENE MALEATE
     Route: 042
     Dates: start: 20200311
  17. CHOLECALCIFEROL [Concomitant]
     Active Substance: CHOLECALCIFEROL
     Indication: Vitamin supplementation
     Route: 048

REACTIONS (17)
  - Mesenteric panniculitis [Not Recovered/Not Resolved]
  - Streptococcal sepsis [Recovered/Resolved]
  - Diarrhoea [Recovering/Resolving]
  - Clostridium colitis [Recovering/Resolving]
  - Clostridium difficile colitis [Recovering/Resolving]
  - Dehydration [Recovered/Resolved]
  - Syncope [Recovered/Resolved]
  - Haematochezia [Recovered/Resolved]
  - Bursitis [Recovered/Resolved]
  - Erysipelas [Recovered/Resolved]
  - Vaginal infection [Recovered/Resolved]
  - Anaemia [Recovering/Resolving]
  - Urinary retention [Recovered/Resolved]
  - Chills [Recovered/Resolved]
  - Pyrexia [Recovered/Resolved]
  - Connective tissue inflammation [Recovered/Resolved]
  - Infection [Recovering/Resolving]

NARRATIVE: CASE EVENT DATE: 20250317
